FAERS Safety Report 15880442 (Version 1)
Quarter: 2019Q1

REPORT INFORMATION
  Report Type: Spontaneous
  Country: US (occurrence: US)
  Receive Date: 20190128
  Receipt Date: 20190128
  Transmission Date: 20190417
  Serious: Yes (Other)
  Sender: FDA-Public Use
  Company Number: US-NOVOPROD-643389

PATIENT
  Age: 60 Year
  Sex: Male

DRUGS (1)
  1. NOVOLOG [Suspect]
     Active Substance: INSULIN ASPART
     Indication: LATENT AUTOIMMUNE DIABETES IN ADULTS
     Dosage: UNK
     Route: 058
     Dates: start: 1991

REACTIONS (1)
  - Macular degeneration [Not Recovered/Not Resolved]

NARRATIVE: CASE EVENT DATE: 2008
